FAERS Safety Report 12435768 (Version 2)
Quarter: 2016Q2

REPORT INFORMATION
  Report Type: Report from Study
  Country: US (occurrence: US)
  Receive Date: 20160603
  Receipt Date: 20160616
  Transmission Date: 20160815
  Serious: Yes (Other)
  Sender: FDA-Public Use
  Company Number: US-ACTELION-A-NJ2016-134099

PATIENT
  Age: 76 Year
  Sex: Male

DRUGS (9)
  1. UPTRAVI [Concomitant]
     Active Substance: SELEXIPAG
     Indication: PULMONARY ARTERIAL HYPERTENSION
     Route: 048
  2. FINASTERIDE. [Concomitant]
     Active Substance: FINASTERIDE
     Dosage: 5 MG, QD
  3. MAGNESIUM [Concomitant]
     Active Substance: MAGNESIUM
     Dosage: UNK, QD
  4. MSM [Concomitant]
     Active Substance: DIMETHYL SULFONE
     Dosage: UNK, QD
  5. OPSUMIT [Suspect]
     Active Substance: MACITENTAN
     Indication: PULMONARY ARTERIAL HYPERTENSION
     Dosage: 10 MG, QD
     Route: 048
     Dates: start: 20151214, end: 20160417
  6. DIGOXIN. [Concomitant]
     Active Substance: DIGOXIN
     Dosage: 125 MCG, QD
  7. ADCIRCA [Concomitant]
     Active Substance: TADALAFIL
     Dosage: 20 MG, BID
     Dates: start: 201601
  8. DILTIAZEM [Concomitant]
     Active Substance: DILTIAZEM
     Dosage: 3 MG, QID
  9. FISH OIL [Concomitant]
     Active Substance: FISH OIL
     Dosage: 1000 MG, BID

REACTIONS (9)
  - Anaemia [Recovered/Resolved]
  - Faeces discoloured [Recovered/Resolved]
  - Packed red blood cell transfusion [Recovered/Resolved]
  - Oedema [Recovering/Resolving]
  - Haematochezia [Recovered/Resolved]
  - Tachycardia [Recovered/Resolved]
  - Asthenia [Not Recovered/Not Resolved]
  - Atrial flutter [Recovered/Resolved]
  - Haemorrhage [Unknown]

NARRATIVE: CASE EVENT DATE: 2016
